FAERS Safety Report 7973401-2 (Version None)
Quarter: 2011Q4

REPORT INFORMATION
  Report Type: 
  Country: None (occurrence: None)
  Receive Date: 20111213
  Receipt Date: 20110921
  Transmission Date: 20120403
  Serious: Yes (Other)
  Sender: FDA-Public Use
  Company Number: US-AMGEN-USASP2011040375

PATIENT
  Sex: Female
  Weight: 104.3 kg

DRUGS (1)
  1. ARANESP [Suspect]
     Indication: RENAL FAILURE CHRONIC
     Dates: start: 20090101

REACTIONS (2)
  - INCORRECT DOSE ADMINISTERED [None]
  - HAEMOGLOBIN DECREASED [None]
